FAERS Safety Report 4368525-5 (Version None)
Quarter: 2004Q2

REPORT INFORMATION
  Report Type: 
  Country: None (occurrence: None)
  Receive Date: 20040602
  Receipt Date: 20040227
  Transmission Date: 20050107
  Serious: No
  Sender: FDA-Public Use
  Company Number: US-GLAXOSMITHKLINE-A0500391A

PATIENT
  Age: 7 Year
  Sex: Female
  Weight: 42 kg

DRUGS (1)
  1. AUGMENTIN ES-600 [Suspect]
     Indication: OTITIS MEDIA
     Dosage: 600MG TWICE PER DAY
     Route: 048
     Dates: start: 20040210, end: 20040220

REACTIONS (1)
  - TYMPANIC MEMBRANE PERFORATION [None]
